FAERS Safety Report 6701980-1 (Version None)
Quarter: 2010Q2

REPORT INFORMATION
  Report Type: 
  Country: None (occurrence: None)
  Receive Date: 20100429
  Receipt Date: 20100419
  Transmission Date: 20101027
  Serious: No
  Sender: FDA-Public Use
  Company Number: US-B.I. PHARMACEUTICALS,INC./RIDGEFIELD-2010-BP-02647BP

PATIENT
  Sex: Female

DRUGS (1)
  1. MICARDIS HCT [Suspect]
     Indication: HYPERTENSION
     Route: 048
     Dates: start: 19900101

REACTIONS (5)
  - ARTHRALGIA [None]
  - DIABETES MELLITUS [None]
  - FALL [None]
  - HEART RATE IRREGULAR [None]
  - INJURY CORNEAL [None]
